FAERS Safety Report 4801372-6 (Version None)
Quarter: 2005Q4

REPORT INFORMATION
  Report Type: 
  Country: None (occurrence: None)
  Receive Date: 20051012
  Receipt Date: 20050927
  Transmission Date: 20060501
  Serious: Yes (Other)
  Sender: FDA-Public Use
  Company Number: 2005-US-00261

PATIENT
  Age: 76 Year
  Sex: Female

DRUGS (11)
  1. QVAR 40 [Suspect]
     Indication: ASTHMA
     Dosage: 2 PUFFS, BID, INHALATION
     Route: 055
     Dates: start: 20050621, end: 20050817
  2. CAPTOPRIL [Concomitant]
  3. CHLORAMPHENICOL [Concomitant]
  4. BECLOMETHASONE DIPROPIONATE [Concomitant]
  5. LORATADINE [Concomitant]
  6. SALBUTAMOL [Concomitant]
  7. OMEPRAZOLE [Concomitant]
  8. BETAMETHASONE DIPROPIONATE [Concomitant]
  9. HYDROCORTISONE [Concomitant]
  10. SIMVASTATIN [Concomitant]
  11. ASPIRIN [Concomitant]

REACTIONS (3)
  - BLISTER [None]
  - ORAL MUCOSAL BLISTERING [None]
  - TONGUE DISORDER [None]
